FAERS Safety Report 22827900 (Version 2)
Quarter: 2023Q4

REPORT INFORMATION
  Report Type: Spontaneous
  Country: US (occurrence: US)
  Receive Date: 20230816
  Receipt Date: 20231027
  Transmission Date: 20240109
  Serious: Yes (Other)
  Sender: FDA-Public Use
  Company Number: US-PFIZER INC-PV202300111871

PATIENT
  Age: 65 Year
  Sex: Male

DRUGS (1)
  1. INLYTA [Suspect]
     Active Substance: AXITINIB
     Dosage: OFF-LABEL LOW DOSE FOR 10 DAYS

REACTIONS (9)
  - Blood pressure decreased [Unknown]
  - Nasal neoplasm [Unknown]
  - Off label use [Unknown]
  - Illness [Unknown]
  - Eye pain [Unknown]
  - Headache [Unknown]
  - Rash pruritic [Unknown]
  - Bacterial infection [Unknown]
  - Throat tightness [Unknown]

NARRATIVE: CASE EVENT DATE: 20230808
